FAERS Safety Report 5696224-6 (Version None)
Quarter: 2008Q2

REPORT INFORMATION
  Report Type: 
  Country: None (occurrence: None)
  Receive Date: 20080407
  Receipt Date: 20080331
  Transmission Date: 20081010
  Serious: Yes (Other)
  Sender: FDA-Public Use
  Company Number: US-PFIZER INC-2008028382

PATIENT
  Sex: Female

DRUGS (1)
  1. DILANTIN [Suspect]

REACTIONS (6)
  - AMNESIA [None]
  - ANTICONVULSANT DRUG LEVEL INCREASED [None]
  - CONVULSION [None]
  - FEELING HOT [None]
  - HYPOAESTHESIA [None]
  - PARAESTHESIA [None]
